FAERS Safety Report 4398579-1 (Version None)
Quarter: 2004Q3

REPORT INFORMATION
  Report Type: 
  Country: None (occurrence: None)
  Receive Date: 20040712
  Receipt Date: 20040629
  Transmission Date: 20050211
  Serious: Yes (Other)
  Sender: FDA-Public Use
  Company Number: 2004221734GB

PATIENT
  Age: 56 Year
  Sex: Male

DRUGS (3)
  1. XALATAN [Suspect]
     Dosage: TID, OPHTHALMIC
     Route: 047
     Dates: start: 20040227, end: 20040528
  2. FINASTERIDE [Concomitant]
  3. TAMSULOSIN (TAMSULOSIN) [Concomitant]

REACTIONS (2)
  - DYSPNOEA [None]
  - WHEEZING [None]
